FAERS Safety Report 10363592 (Version 1)
Quarter: 2014Q3

REPORT INFORMATION
  Report Type: Spontaneous
  Country: US (occurrence: US)
  Receive Date: 20140805
  Receipt Date: 20140805
  Transmission Date: 20150326
  Serious: Yes (Other)
  Sender: FDA-Public Use
  Company Number: US-ASTRAZENECA-2014SE54764

PATIENT
  Age: 58 Year
  Sex: Female
  Weight: 56.7 kg

DRUGS (3)
  1. NEXIUM [Suspect]
     Active Substance: ESOMEPRAZOLE MAGNESIUM
     Indication: GASTROOESOPHAGEAL REFLUX DISEASE
     Route: 048
     Dates: start: 2002
  2. XANAX [Concomitant]
     Active Substance: ALPRAZOLAM
     Indication: STRESS
     Route: 048
     Dates: start: 1994
  3. PRILOSEC OTC [Suspect]
     Active Substance: OMEPRAZOLE MAGNESIUM
     Indication: GASTROOESOPHAGEAL REFLUX DISEASE
     Route: 048
     Dates: start: 201407

REACTIONS (10)
  - Eating disorder [Unknown]
  - Haematemesis [Unknown]
  - Menopause [Unknown]
  - Drug ineffective [Unknown]
  - Gastrooesophageal reflux disease [Unknown]
  - Hepatic enzyme increased [Unknown]
  - Stress [Unknown]
  - Malaise [Unknown]
  - Chest discomfort [Unknown]
  - Abdominal discomfort [Unknown]

NARRATIVE: CASE EVENT DATE: 2014
